FAERS Safety Report 12961853 (Version 6)
Quarter: 2018Q1

REPORT INFORMATION
  Report Type: Report from Study
  Country: US (occurrence: US)
  Receive Date: 20161121
  Receipt Date: 20180326
  Transmission Date: 20180508
  Serious: Yes (Death, Hospitalization)
  Sender: FDA-Public Use
  Company Number: US-ACTELION-A-NJ2016-145788

PATIENT
  Age: 79 Year
  Sex: Female

DRUGS (14)
  1. JANUVIA [Concomitant]
     Active Substance: SITAGLIPTIN PHOSPHATE
     Dosage: 25 MG, QD
     Dates: start: 20120213
  2. OPSUMIT [Suspect]
     Active Substance: MACITENTAN
     Indication: PULMONARY ARTERIAL HYPERTENSION
     Dosage: 10 MG, QD
     Route: 048
     Dates: start: 20140429, end: 20180217
  3. LISINOPRIL. [Concomitant]
     Active Substance: LISINOPRIL
     Dosage: 5 MG, QD
     Dates: start: 20120213
  4. REVATIO [Concomitant]
     Active Substance: SILDENAFIL CITRATE
     Dosage: 20 MG, TID
     Dates: start: 20130327
  5. WARFARIN [Concomitant]
     Active Substance: WARFARIN
  6. LIPITOR [Concomitant]
     Active Substance: ATORVASTATIN CALCIUM
     Dosage: 20 MG, QD
     Dates: start: 20120213
  7. PRILOSEC [Concomitant]
     Active Substance: OMEPRAZOLE MAGNESIUM
     Dosage: 20 MG, QD
     Dates: start: 20120213
  8. COREG [Concomitant]
     Active Substance: CARVEDILOL
  9. CARVEDILOL. [Concomitant]
     Active Substance: CARVEDILOL
     Dosage: 6.25 MG, BID
     Dates: start: 20120213
  10. NEURONTIN [Concomitant]
     Active Substance: GABAPENTIN
     Dosage: 600 MG, QPM
     Dates: start: 20160912
  11. ASPIRIN. [Concomitant]
     Active Substance: ASPIRIN
     Dosage: 81 MG, QD
     Dates: start: 20020213
  12. FUROSEMIDE. [Concomitant]
     Active Substance: FUROSEMIDE
     Dosage: 40 MG, QD
     Dates: start: 20150406
  13. KLOR-CON [Concomitant]
     Active Substance: POTASSIUM CHLORIDE
     Dosage: 10 MEQ, QD
     Dates: start: 20160119
  14. FLORASTOR [Concomitant]
     Active Substance: SACCHAROMYCES CEREVISIAE
     Dosage: 250 MG, TID

REACTIONS (20)
  - Oxygen saturation decreased [Unknown]
  - Blood pressure decreased [Unknown]
  - Pericardial effusion [Fatal]
  - Renal failure [Unknown]
  - Colitis [Unknown]
  - Blood glucose increased [Unknown]
  - Acute respiratory failure [Unknown]
  - Hypoxia [Unknown]
  - Pain in extremity [Unknown]
  - Asthenia [Unknown]
  - Cardiac failure congestive [Unknown]
  - Bronchitis [Unknown]
  - Multiple organ dysfunction syndrome [Fatal]
  - Type 2 diabetes mellitus [Unknown]
  - Dyspnoea [Unknown]
  - Swelling [Unknown]
  - Pneumonia [Unknown]
  - Pleural effusion [Unknown]
  - Pulmonary arterial hypertension [Unknown]
  - Dizziness [Unknown]

NARRATIVE: CASE EVENT DATE: 20161025
